FAERS Safety Report 7462060-3 (Version None)
Quarter: 2011Q2

REPORT INFORMATION
  Report Type: 
  Country: None (occurrence: None)
  Receive Date: 20110506
  Receipt Date: 20100722
  Transmission Date: 20111010
  Serious: No
  Sender: FDA-Public Use
  Company Number: US-BAYER-201031073NA

PATIENT
  Sex: Female

DRUGS (1)
  1. YAZ [Suspect]
     Indication: PREMENSTRUAL SYNDROME

REACTIONS (7)
  - ABDOMINAL PAIN UPPER [None]
  - NAUSEA [None]
  - FAECES DISCOLOURED [None]
  - MYALGIA [None]
  - DIARRHOEA [None]
  - SKIN MASS [None]
  - LIBIDO DECREASED [None]
